FAERS Safety Report 16881465 (Version 1)
Quarter: 2019Q4

REPORT INFORMATION
  Report Type: Spontaneous
  Country: US (occurrence: US)
  Receive Date: 20190807
  Receipt Date: 20190807
  Transmission Date: 20200122
  Serious: Yes (Life-Threatening, Hospitalization, Other)
  Sender: FDA-Public Use
  Company Number: None

PATIENT
  Sex: Male
  Weight: 49.9 kg

DRUGS (10)
  1. VITAMIN C [Concomitant]
     Active Substance: ASCORBIC ACID
  2. BLACK COHOSH [Concomitant]
     Active Substance: BLACK COHOSH
  3. GABA [Concomitant]
     Active Substance: HOMEOPATHICS
  4. NAPROXON [Concomitant]
     Active Substance: NAPROXEN
  5. VITAMIN B12 [Concomitant]
     Active Substance: CYANOCOBALAMIN
  6. HALOPERIDOL. [Suspect]
     Active Substance: HALOPERIDOL
     Indication: CATATONIA
     Dates: start: 197208
  7. COUGH SYRUP [Concomitant]
     Active Substance: DEXTROMETHORPHAN HYDROBROMIDE\GUAIFENESIN
  8. MULTI SUPPLEMENT [Concomitant]
  9. DAMIANA [Concomitant]
  10. HALDOL [Suspect]
     Active Substance: HALOPERIDOL

REACTIONS (5)
  - Hallucination [None]
  - Acne [None]
  - Nightmare [None]
  - Tremor [None]
  - Insomnia [None]

NARRATIVE: CASE EVENT DATE: 19720822
